FAERS Safety Report 16195006 (Version 1)
Quarter: 2019Q2

REPORT INFORMATION
  Report Type: Spontaneous
  Country: FR (occurrence: FR)
  Receive Date: 20190415
  Receipt Date: 20190415
  Transmission Date: 20190711
  Serious: Yes (Hospitalization, Other)
  Sender: FDA-Public Use
  Company Number: FR-AUROBINDO-AUR-APL-2019-019649

PATIENT

DRUGS (3)
  1. VERATRAN [Suspect]
     Active Substance: CLOTIAZEPAM
     Indication: AGITATION
     Dosage: 20 MILLIGRAM
     Route: 048
     Dates: start: 20190307
  2. RISPERIDONE. [Suspect]
     Active Substance: RISPERIDONE
     Indication: AGITATION
     Dosage: 2 MILLIGRAM
     Route: 048
     Dates: start: 20181220
  3. TEMESTA (LORAZEPAM) [Suspect]
     Active Substance: LORAZEPAM
     Indication: ANXIETY
     Dosage: 7.5 MILLIGRAM
     Route: 048
     Dates: start: 20190303, end: 20190303

REACTIONS (2)
  - Catatonia [Not Recovered/Not Resolved]
  - Hypothermia [Not Recovered/Not Resolved]

NARRATIVE: CASE EVENT DATE: 20190304
